FAERS Safety Report 11735421 (Version 4)
Quarter: 2016Q1

REPORT INFORMATION
  Report Type: Spontaneous
  Country: US (occurrence: US)
  Receive Date: 20151113
  Receipt Date: 20160210
  Transmission Date: 20160525
  Serious: No
  Sender: FDA-Public Use
  Company Number: US-JNJFOC-20151013796

PATIENT
  Age: 5 Year
  Sex: Male

DRUGS (12)
  1. RISPERIDONE. [Suspect]
     Active Substance: RISPERIDONE
     Indication: AFFECTIVE DISORDER
     Dosage: 0.5 MG AND 1 MG
     Route: 048
     Dates: start: 20080104, end: 20130806
  2. RISPERDAL [Suspect]
     Active Substance: RISPERIDONE
     Indication: AFFECTIVE DISORDER
     Route: 048
     Dates: start: 200401, end: 201302
  3. RISPERDAL M-TAB [Suspect]
     Active Substance: RISPERIDONE
     Indication: PRODUCT USED FOR UNKNOWN INDICATION
     Dosage: 0.5 MG AND 1 MG
     Route: 048
  4. RISPERDAL [Suspect]
     Active Substance: RISPERIDONE
     Indication: ATTENTION DEFICIT/HYPERACTIVITY DISORDER
     Route: 048
  5. RISPERIDONE. [Suspect]
     Active Substance: RISPERIDONE
     Indication: ATTENTION DEFICIT/HYPERACTIVITY DISORDER
     Dosage: 0.5 MG AND 1 MG
     Route: 048
     Dates: start: 20080104, end: 20130806
  6. RISPERIDONE. [Suspect]
     Active Substance: RISPERIDONE
     Indication: OPPOSITIONAL DEFIANT DISORDER
     Dosage: 0.5 MG AND 1 MG
     Route: 048
     Dates: start: 20080104, end: 20130806
  7. RISPERIDONE. [Suspect]
     Active Substance: RISPERIDONE
     Indication: PRODUCT USED FOR UNKNOWN INDICATION
  8. ZYPREXA [Suspect]
     Active Substance: OLANZAPINE
     Indication: OPPOSITIONAL DEFIANT DISORDER
     Route: 048
     Dates: start: 20131004, end: 20140510
  9. ZYPREXA [Suspect]
     Active Substance: OLANZAPINE
     Indication: ATTENTION DEFICIT/HYPERACTIVITY DISORDER
     Route: 048
     Dates: start: 20131004, end: 20140510
  10. ZYPREXA [Suspect]
     Active Substance: OLANZAPINE
     Indication: AFFECTIVE DISORDER
     Route: 048
     Dates: start: 20131004, end: 20140510
  11. RISPERDAL [Suspect]
     Active Substance: RISPERIDONE
     Indication: OPPOSITIONAL DEFIANT DISORDER
     Route: 048
     Dates: start: 200401, end: 201302
  12. RISPERDAL [Suspect]
     Active Substance: RISPERIDONE
     Indication: ATTENTION DEFICIT/HYPERACTIVITY DISORDER
     Route: 048
     Dates: start: 200401, end: 201302

REACTIONS (7)
  - Movement disorder [Unknown]
  - Obesity [Unknown]
  - Blood prolactin abnormal [Recovered/Resolved]
  - Emotional disorder [Unknown]
  - Off label use [Unknown]
  - Product use issue [Unknown]
  - Gynaecomastia [Unknown]

NARRATIVE: CASE EVENT DATE: 200401
